FAERS Safety Report 15798025 (Version 2)
Quarter: 2019Q1

REPORT INFORMATION
  Report Type: Spontaneous
  Country: US (occurrence: US)
  Receive Date: 20190108
  Receipt Date: 20190121
  Transmission Date: 20190417
  Serious: Yes (Hospitalization)
  Sender: FDA-Public Use
  Company Number: US-HORIZON-RAV-0245-2018

PATIENT
  Age: 33 Year
  Sex: Female

DRUGS (7)
  1. BENADRYL [Concomitant]
     Active Substance: DIPHENHYDRAMINE HYDROCHLORIDE
  2. PROVENTIL [Concomitant]
     Active Substance: ALBUTEROL
  3. KEPPRA [Concomitant]
     Active Substance: LEVETIRACETAM
  4. RAVICTI [Suspect]
     Active Substance: GLYCEROL PHENYLBUTYRATE
     Indication: UREA CYCLE DISORDER
     Dosage: 4 ML THREE TIMES DAILY WITH MEALS
     Dates: start: 201511
  5. OXYCODONE [Concomitant]
     Active Substance: OXYCODONE
  6. EAA (ESSENTIAL AMINO ACID) SUPPLEMENT [Concomitant]
  7. LEVOCARNITINE. [Concomitant]
     Active Substance: LEVOCARNITINE

REACTIONS (4)
  - Abdominal pain [Unknown]
  - Ammonia increased [Unknown]
  - Asthenia [Unknown]
  - Mental status changes [Unknown]

NARRATIVE: CASE EVENT DATE: 20181217
